FAERS Safety Report 7593851-6 (Version None)
Quarter: 2011Q3

REPORT INFORMATION
  Report Type: 
  Country: None (occurrence: None)
  Receive Date: 20110706
  Receipt Date: 20110630
  Transmission Date: 20111222
  Serious: Yes (Other)
  Sender: FDA-Public Use
  Company Number: ES-PFIZER INC-2011146168

PATIENT
  Age: 74 Year
  Sex: Male

DRUGS (11)
  1. CEFTRIAXONE SODIUM [Concomitant]
     Route: 042
  2. ZARATOR ^PFIZER^ [Concomitant]
     Route: 048
  3. ZYVOX [Concomitant]
  4. VFEND [Suspect]
     Dosage: 550 MG, UNK
     Route: 042
     Dates: start: 20100801, end: 20100810
  5. PANTOMICINA [Interacting]
     Dosage: UNK
     Route: 042
     Dates: start: 20100801, end: 20100810
  6. TACROLIMUS [Concomitant]
     Indication: IMMUNOSUPPRESSION
     Dosage: 0.5 MG, UNK
     Route: 048
  7. CELLCEPT [Concomitant]
     Indication: IMMUNOSUPPRESSION
     Dosage: 750 MG, UNK
     Route: 048
  8. SOLTRIM [Concomitant]
     Dosage: UNK
     Dates: start: 20100801, end: 20100809
  9. GENTA-GOBENS [Concomitant]
     Route: 042
  10. ULTIVA [Concomitant]
  11. LEVOFLOXACIN [Concomitant]
     Dosage: UNK
     Route: 042
     Dates: start: 20100802, end: 20100810

REACTIONS (4)
  - AGITATION [None]
  - DRUG INTERACTION [None]
  - NEUROTOXICITY [None]
  - DISORIENTATION [None]
